FAERS Safety Report 8814527 (Version 1)
Quarter: 2012Q4

REPORT INFORMATION
  Report Type: 
  Country: US (occurrence: US)
  Receive Date: 20120928
  Receipt Date: 20120928
  Transmission Date: 20130627
  Serious: Yes (Other)
  Sender: FDA-Public Use
  Company Number: PHEH2012US018774

PATIENT
  Sex: Female

DRUGS (2)
  1. FEMARA [Suspect]
  2. ARIMIDEX ^ZENECA^ [Suspect]

REACTIONS (2)
  - Neoplasm malignant [Unknown]
  - Weight increased [Unknown]
